FAERS Safety Report 4467726-5 (Version None)
Quarter: 2004Q4

REPORT INFORMATION
  Report Type: 
  Country: None (occurrence: None)
  Receive Date: 20041004
  Receipt Date: 20041004
  Transmission Date: 20050328
  Serious: No
  Sender: FDA-Public Use
  Company Number: None

PATIENT
  Age: 33 Year
  Sex: Male
  Weight: 56.6996 kg

DRUGS (17)
  1. CEFIPIME 2GM ELAN PHARMACEUTICALS [Suspect]
     Indication: FEBRILE NEUTROPENIA
     Dosage: 2GM Q8H INTRAVENOU
     Route: 042
     Dates: start: 20040927, end: 20040929
  2. CEFIPIME 2GM ELAN PHARMACEUTICALS [Suspect]
     Indication: MUCOSAL INFLAMMATION
     Dosage: 2GM Q8H INTRAVENOU
     Route: 042
     Dates: start: 20040927, end: 20040929
  3. METHADONE HCL [Concomitant]
  4. DAUNORUBICIN HCL [Concomitant]
  5. CYTARABINE [Concomitant]
  6. METOCLOPROMIDE [Concomitant]
  7. ONDANSETRON [Concomitant]
  8. CLINDAMYCIN [Concomitant]
  9. NICOTINE [Concomitant]
  10. ALLOPURINOL [Concomitant]
  11. GENTAMYCIN EYE [Concomitant]
  12. CHLORHEXADINE [Concomitant]
  13. GLUCONATE [Concomitant]
  14. ZOLPIDEM TARTRATE [Concomitant]
  15. APAP TAB [Concomitant]
  16. MOTRIN [Concomitant]
  17. LORAZEPAM [Concomitant]

REACTIONS (1)
  - RASH MACULO-PAPULAR [None]
